FAERS Safety Report 26132189 (Version 1)
Quarter: 2025Q4

REPORT INFORMATION
  Report Type: Spontaneous
  Country: US (occurrence: US)
  Receive Date: 20251208
  Receipt Date: 20251208
  Transmission Date: 20260117
  Serious: No
  Sender: ABBVIE
  Company Number: US-ABBVIE-6577796

PATIENT
  Sex: Female

DRUGS (1)
  1. QULIPTA [Suspect]
     Active Substance: ATOGEPANT
     Indication: Migraine prophylaxis
     Dosage: FORM STRENGTH - 60 MILLIGRAM; TOOK FOR TWO AND A HALF MONTHS
     Route: 048

REACTIONS (2)
  - Amenorrhoea [Unknown]
  - Fatigue [Unknown]
